FAERS Safety Report 4774669-6 (Version None)
Quarter: 2005Q3

REPORT INFORMATION
  Report Type: 
  Country: None (occurrence: None)
  Receive Date: 20050914
  Receipt Date: 20050406
  Transmission Date: 20060218
  Serious: Yes (Hospitalization)
  Sender: FDA-Public Use
  Company Number: 163-20785-05040085

PATIENT
  Age: 65 Year
  Sex: Male

DRUGS (5)
  1. THALOMID [Suspect]
     Indication: MULTIPLE MYELOMA
     Dosage: 200 MG DAILY ORAL
     Route: 048
     Dates: start: 20050101, end: 20050304
  2. HYDROCHLOROTHIAZIDE [Concomitant]
  3. LOTREL [Concomitant]
  4. VERAPAMIL [Concomitant]
  5. ALBUTEROL [Concomitant]

REACTIONS (3)
  - CEREBROVASCULAR ACCIDENT [None]
  - DIFFICULTY IN WALKING [None]
  - MEMORY IMPAIRMENT [None]
